FAERS Safety Report 20490490 (Version 1)
Quarter: 2022Q1

REPORT INFORMATION
  Report Type: Spontaneous
  Country: FR (occurrence: FR)
  Receive Date: 20220218
  Receipt Date: 20220218
  Transmission Date: 20220423
  Serious: Yes (Other)
  Sender: FDA-Public Use
  Company Number: None

PATIENT
  Age: 35 Year
  Sex: Female
  Weight: 65 kg

DRUGS (3)
  1. SERTRALINE [Suspect]
     Active Substance: SERTRALINE HYDROCHLORIDE
     Dosage: UNK
     Route: 048
     Dates: end: 20210330
  2. CLOMIPRAMINE HYDROCHLORIDE [Suspect]
     Active Substance: CLOMIPRAMINE HYDROCHLORIDE
     Indication: Obsessive-compulsive disorder
     Dosage: UNK
     Route: 048
     Dates: end: 20210330
  3. PRAZEPAM [Concomitant]
     Active Substance: PRAZEPAM
     Indication: Obsessive-compulsive disorder
     Dosage: UNK
     Route: 048
     Dates: end: 20210324

REACTIONS (2)
  - Maternal exposure during pregnancy [Unknown]
  - Retroplacental haematoma [Unknown]

NARRATIVE: CASE EVENT DATE: 20210330
